FAERS Safety Report 6220909-6 (Version None)
Quarter: 2009Q2

REPORT INFORMATION
  Report Type: 
  Country: None (occurrence: None)
  Receive Date: 20090610
  Receipt Date: 20090603
  Transmission Date: 20091009
  Serious: Yes (Other)
  Sender: FDA-Public Use
  Company Number: US-ASTRAZENECA-2009UW14074

PATIENT
  Age: 867 Month
  Sex: Female
  Weight: 63 kg

DRUGS (8)
  1. SEROQUEL [Suspect]
     Indication: DEMENTIA ALZHEIMER'S TYPE
     Route: 048
     Dates: start: 20090527, end: 20090531
  2. SEROQUEL [Suspect]
     Route: 048
     Dates: start: 20090531, end: 20090603
  3. SEROQUEL [Suspect]
     Route: 048
     Dates: start: 20090603
  4. RITALIN [Concomitant]
  5. RANITIDINE [Concomitant]
  6. NAMENDA [Concomitant]
  7. FISH OIL [Concomitant]
  8. PHOSPHATIDYL SERINE [Concomitant]

REACTIONS (3)
  - ABNORMAL BEHAVIOUR [None]
  - ACTIVITIES OF DAILY LIVING IMPAIRED [None]
  - CARDIAC PACEMAKER REPLACEMENT [None]
